FAERS Safety Report 4267985-8 (Version None)
Quarter: 2004Q1

REPORT INFORMATION
  Report Type: 
  Country: None (occurrence: None)
  Receive Date: 20040107
  Receipt Date: 20030523
  Transmission Date: 20041129
  Serious: No
  Sender: FDA-Public Use
  Company Number: 2003UW03972

PATIENT
  Sex: Female

DRUGS (5)
  1. DIPRIVAN [Suspect]
     Indication: SURGERY
     Dates: start: 19970815
  2. DIPRIVAN [Suspect]
     Indication: SURGERY
     Dates: start: 20021002
  3. ROCURONIUM [Suspect]
     Indication: SURGERY
     Dates: start: 19970815
  4. ROCURONIUM [Suspect]
     Indication: SURGERY
     Dates: start: 20021002
  5. UNSPECIFIED MUSCLE RELAXANTS [Concomitant]

REACTIONS (1)
  - ANAPHYLACTIC REACTION [None]
